FAERS Safety Report 4900201-X (Version None)
Quarter: 2006Q1

REPORT INFORMATION
  Report Type: 
  Country: None (occurrence: None)
  Receive Date: 20060203
  Receipt Date: 20050928
  Transmission Date: 20060701
  Serious: No
  Sender: FDA-Public Use
  Company Number: US-GLAXOSMITHKLINE-A0576230A

PATIENT
  Age: 73 Year
  Sex: Male
  Weight: 88.6 kg

DRUGS (4)
  1. ARIXTRA [Suspect]
     Dosage: 1INJ PER DAY
     Route: 058
     Dates: start: 20050817, end: 20050826
  2. SPINAL NERVE BLOCK [Suspect]
     Route: 065
  3. LOVASTATIN [Concomitant]
  4. FLOMAX [Concomitant]

REACTIONS (2)
  - HYPOAESTHESIA [None]
  - NERVE COMPRESSION [None]
